FAERS Safety Report 5209855-4 (Version None)
Quarter: 2006Q4

REPORT INFORMATION
  Report Type: 
  Country: None (occurrence: None)
  Receive Date: 20061128
  Receipt Date: 20061010
  Transmission Date: 20070319
  Serious: No
  Sender: FDA-Public Use
  Company Number: S06-USA-04232-01

PATIENT
  Age: 23 Year
  Sex: Female

DRUGS (5)
  1. CAMPRAL [Suspect]
     Indication: ALCOHOLISM
     Dosage: 666 MG TID PO
     Route: 048
     Dates: start: 20051201
  2. LITHIUM CARBONATE [Concomitant]
  3. CONCERTA [Concomitant]
  4. TRAZODONE HCL [Concomitant]
  5. ZOLOFT [Concomitant]

REACTIONS (1)
  - DRUG SCREEN FALSE POSITIVE [None]
